FAERS Safety Report 7613793-7 (Version None)
Quarter: 2011Q3

REPORT INFORMATION
  Report Type: 
  Country: None (occurrence: None)
  Receive Date: 20110708
  Receipt Date: 20110630
  Transmission Date: 20111222
  Serious: Yes (Life-Threatening)
  Sender: FDA-Public Use
  Company Number: 2011SP030684

PATIENT
  Age: 60 Year
  Sex: Female

DRUGS (2)
  1. PEG-INTRON [Suspect]
     Indication: HEPATITIS
     Dosage: 100 MCG; QW; SC
     Route: 058
     Dates: start: 20110201, end: 20110630
  2. REBETOL [Suspect]
     Indication: HEPATITIS C
     Dosage: 200 MG; TID; ORAL
     Route: 048
     Dates: start: 20110201, end: 20110630

REACTIONS (1)
  - LUNG DISORDER [None]
